FAERS Safety Report 7131041-1 (Version None)
Quarter: 2010Q4

REPORT INFORMATION
  Report Type: 
  Country: None (occurrence: None)
  Receive Date: 20101201
  Receipt Date: 20101124
  Transmission Date: 20110411
  Serious: Yes (Hospitalization)
  Sender: FDA-Public Use
  Company Number: B0686886A

PATIENT
  Sex: Female

DRUGS (1)
  1. AUGMENTIN [Suspect]
     Indication: BRONCHITIS
     Dosage: .5ML PER DAY
     Route: 048
     Dates: start: 20101101, end: 20101112

REACTIONS (2)
  - OEDEMA PERIPHERAL [None]
  - RASH [None]
